FAERS Safety Report 22296569 (Version 1)
Quarter: 2023Q2

REPORT INFORMATION
  Report Type: Spontaneous
  Country: CO (occurrence: CO)
  Receive Date: 20230508
  Receipt Date: 20230508
  Transmission Date: 20230722
  Serious: Yes (Other)
  Sender: FDA-Public Use
  Company Number: CO-BAYER-2023A062642

PATIENT
  Sex: Male

DRUGS (1)
  1. XARELTO [Suspect]
     Active Substance: RIVAROXABAN
     Indication: Atrial fibrillation
     Dosage: 20 MG PER DAY, ORALLY
     Route: 048
     Dates: start: 2021, end: 202206

REACTIONS (1)
  - Cardiac ablation [Not Recovered/Not Resolved]

NARRATIVE: CASE EVENT DATE: 20220201
